FAERS Safety Report 9429741 (Version 2)
Quarter: 2013Q3

REPORT INFORMATION
  Report Type: Spontaneous
  Country: RO (occurrence: None)
  Receive Date: 20130726
  Receipt Date: 20130910
  Transmission Date: 20140515
  Serious: Yes (Other)
  Sender: FDA-Public Use
  Company Number: AUR-APL-2013-06162

PATIENT
  Age: 22 Year
  Sex: Female

DRUGS (3)
  1. MONTELUKAST [Suspect]
     Indication: ASTHMA
  2. TIOTROPIUM BROMIDE [Suspect]
     Indication: ASTHMA
  3. THEOPHYLLINE [Suspect]
     Indication: ASTHMA

REACTIONS (3)
  - No therapeutic response [None]
  - Aphthous stomatitis [None]
  - Asthma [None]
